FAERS Safety Report 19519110 (Version 1)
Quarter: 2021Q3

REPORT INFORMATION
  Report Type: Spontaneous
  Country: CH (occurrence: CH)
  Receive Date: 20210712
  Receipt Date: 20210712
  Transmission Date: 20211014
  Serious: Yes (Other)
  Sender: FDA-Public Use
  Company Number: NVSC2021CH109906

PATIENT
  Sex: Female

DRUGS (7)
  1. BEOVU [Suspect]
     Active Substance: BROLUCIZUMAB-DBLL
     Indication: PRODUCT USED FOR UNKNOWN INDICATION
     Dosage: 6 MG (LEFT EYE)
     Route: 065
     Dates: start: 20210428
  2. ASPIRIN CARDIO [Concomitant]
     Active Substance: ASPIRIN
     Indication: PRODUCT USED FOR UNKNOWN INDICATION
     Dosage: UNK (DOSE: 100; UNITS NOT REPORTED)
     Route: 065
  3. EYLEA [Concomitant]
     Active Substance: AFLIBERCEPT
     Indication: PRODUCT USED FOR UNKNOWN INDICATION
     Dosage: UNK (16 TIMES IN RIGHT EYE)
     Route: 065
     Dates: start: 20190529, end: 20210428
  4. ROSUVASTATIN. [Concomitant]
     Active Substance: ROSUVASTATIN
     Indication: PRODUCT USED FOR UNKNOWN INDICATION
     Dosage: UNK
     Route: 065
  5. EYLEA [Concomitant]
     Active Substance: AFLIBERCEPT
     Dosage: UNK (IN RIGHT EYE)
     Route: 065
     Dates: start: 20210623
  6. NUTROF TOTAL [Concomitant]
     Indication: PRODUCT USED FOR UNKNOWN INDICATION
     Dosage: UNK, QD
     Route: 065
     Dates: start: 20170623
  7. POSIFORMIN [Concomitant]
     Indication: PRODUCT USED FOR UNKNOWN INDICATION
     Dosage: 5 G, BID (IN LEFT EYE)
     Route: 065
     Dates: start: 20170623

REACTIONS (7)
  - Papilloedema [Unknown]
  - Anterior chamber cell [Not Recovered/Not Resolved]
  - Eye pain [Not Recovered/Not Resolved]
  - Iridocyclitis [Recovering/Resolving]
  - Visual acuity reduced [Unknown]
  - Vision blurred [Not Recovered/Not Resolved]
  - Visual impairment [Unknown]

NARRATIVE: CASE EVENT DATE: 20210511
